FAERS Safety Report 12873372 (Version 1)
Quarter: 2016Q4

REPORT INFORMATION
  Report Type: Spontaneous
  Country: US (occurrence: US)
  Receive Date: 20161021
  Receipt Date: 20161021
  Transmission Date: 20170207
  Serious: No
  Sender: FDA-Public Use
  Company Number: US-ALLERGAN-1518301US

PATIENT
  Age: 37 Year
  Sex: Female

DRUGS (1)
  1. FML [Suspect]
     Active Substance: FLUOROMETHOLONE
     Indication: EYE INFLAMMATION
     Dosage: UNK
     Route: 047
     Dates: start: 20150820, end: 20150829

REACTIONS (5)
  - Food allergy [Unknown]
  - Hypersensitivity [Unknown]
  - Eye swelling [Recovered/Resolved]
  - Anxiety [Not Recovered/Not Resolved]
  - Eye irritation [Unknown]

NARRATIVE: CASE EVENT DATE: 201508
